FAERS Safety Report 11043061 (Version 1)
Quarter: 2015Q2

REPORT INFORMATION
  Report Type: Spontaneous
  Country: US (occurrence: None)
  Receive Date: 20150416
  Receipt Date: 20150416
  Transmission Date: 20150821
  Serious: Yes (Death, Life-Threatening, Hospitalization, Disabling)
  Sender: FDA-Public Use
  Company Number: None

PATIENT
  Age: 74 Year
  Sex: Female

DRUGS (4)
  1. TAMOXIFEN [Concomitant]
     Active Substance: TAMOXIFEN
  2. WHEELCHAIR [Concomitant]
     Active Substance: DEVICE
  3. LEVAQUIN [Suspect]
     Active Substance: LEVOFLOXACIN
  4. PREDNISONE. [Concomitant]
     Active Substance: PREDNISONE

REACTIONS (13)
  - Speech disorder [None]
  - Pain in extremity [None]
  - Neurotoxicity [None]
  - Combined immunodeficiency [None]
  - Mental status changes [None]
  - Confusional state [None]
  - Urinary tract infection [None]
  - Bedridden [None]
  - Eyelid ptosis [None]
  - Urinary incontinence [None]
  - Pain [None]
  - Encephalopathy [None]
  - Mental disorder [None]

NARRATIVE: CASE EVENT DATE: 20141003
